FAERS Safety Report 5139886-4 (Version None)
Quarter: 2006Q4

REPORT INFORMATION
  Report Type: 
  Country: None (occurrence: None)
  Receive Date: 20061025
  Receipt Date: 20061025
  Transmission Date: 20070319
  Serious: Yes (Other)
  Sender: FDA-Public Use
  Company Number: None

PATIENT
  Age: 51 Year
  Sex: Female
  Weight: 90.7 kg

DRUGS (7)
  1. OXYBUTYNIN CHLORIDE [Suspect]
  2. MONTELUKAST NA [Concomitant]
  3. FLUNISOLIDE [Concomitant]
  4. MELOXICAM [Concomitant]
  5. HYDROCODONE BITARTRATE + ACETAMINOPHEN [Concomitant]
  6. SYNTHROID [Concomitant]
  7. CEPHALEXIN [Concomitant]

REACTIONS (2)
  - NAUSEA [None]
  - VOMITING [None]
